FAERS Safety Report 26147147 (Version 1)
Quarter: 2025Q4

REPORT INFORMATION
  Report Type: Spontaneous
  Country: US (occurrence: US)
  Receive Date: 20251211
  Receipt Date: 20251211
  Transmission Date: 20260118
  Serious: Yes (Other)
  Sender: AMGEN
  Company Number: US-AMGEN-USASP2025239595

PATIENT

DRUGS (1)
  1. TARLATAMAB [Suspect]
     Active Substance: TARLATAMAB
     Indication: Small cell lung cancer extensive stage
     Dosage: UNK
     Route: 065

REACTIONS (7)
  - Cytokine release syndrome [Unknown]
  - Immune effector cell-associated neurotoxicity syndrome [Unknown]
  - Fatigue [Unknown]
  - Muscular weakness [Unknown]
  - Agitation [Unknown]
  - Irritability [Unknown]
  - Adverse event [Unknown]
